FAERS Safety Report 5064913-2 (Version None)
Quarter: 2006Q3

REPORT INFORMATION
  Report Type: 
  Country: None (occurrence: None)
  Receive Date: 20060726
  Receipt Date: 20060717
  Transmission Date: 20061208
  Serious: Yes (Hospitalization)
  Sender: FDA-Public Use
  Company Number: 227554

PATIENT
  Age: 55 Year
  Sex: Female

DRUGS (5)
  1. AVASTIN [Suspect]
     Indication: COLON CANCER
     Dosage: 5 MG/KG, INTRAVENOUS
     Route: 042
     Dates: start: 20060321, end: 20060418
  2. ERBITUX [Suspect]
     Indication: COLON CANCER
     Dosage: 250 MG/M2, INTRAVENOUS
     Route: 042
     Dates: start: 20060321, end: 20060509
  3. OXALIPLATIN (OXALIPLATIN) [Suspect]
     Indication: COLON CANCER
     Dosage: 85 MG/M2, INTRAVENOUS
     Route: 042
     Dates: start: 20060321, end: 20060509
  4. LEUCOVORIN CALCIUM [Suspect]
     Indication: COLON CANCER
     Dosage: 400 MG/M2, INTRAVENOUS
     Route: 042
     Dates: start: 20060321, end: 20060509
  5. FLUOROURACIL [Suspect]
     Indication: COLON CANCER
     Dosage: 2400 MB/M2, INTRAVNOUS
     Route: 042
     Dates: start: 20060321, end: 20060509

REACTIONS (1)
  - RESTRICTIVE CARDIOMYOPATHY [None]
